FAERS Safety Report 6525240-7 (Version None)
Quarter: 2010Q1

REPORT INFORMATION
  Report Type: 
  Country: None (occurrence: None)
  Receive Date: 20100104
  Receipt Date: 20091224
  Transmission Date: 20100710
  Serious: Yes (Hospitalization)
  Sender: FDA-Public Use
  Company Number: JP-ROCHE-604877

PATIENT
  Sex: Female

DRUGS (46)
  1. VALGANCICLOVIR HCL [Suspect]
     Indication: CYTOMEGALOVIRUS INFECTION
     Dosage: DRUG: VALIXA (VALGANCICLOVIR HYDROCHLORIDE)
     Route: 048
     Dates: start: 20080926, end: 20081017
  2. TOCILIZUMAB [Suspect]
     Indication: RHEUMATOID ARTHRITIS
     Route: 041
     Dates: start: 20080924, end: 20080924
  3. TOCILIZUMAB [Suspect]
     Route: 041
     Dates: start: 20081020, end: 20081020
  4. TOCILIZUMAB [Suspect]
     Route: 041
     Dates: start: 20081117, end: 20081117
  5. TOCILIZUMAB [Suspect]
     Route: 041
     Dates: start: 20081204, end: 20081204
  6. TOCILIZUMAB [Suspect]
     Route: 041
     Dates: start: 20081218, end: 20081218
  7. TOCILIZUMAB [Suspect]
     Route: 041
     Dates: start: 20081231, end: 20081231
  8. TOCILIZUMAB [Suspect]
     Route: 041
     Dates: start: 20090115, end: 20090115
  9. TOCILIZUMAB [Suspect]
     Route: 041
     Dates: start: 20090129, end: 20090129
  10. TOCILIZUMAB [Suspect]
     Route: 041
     Dates: start: 20090212, end: 20090212
  11. TOCILIZUMAB [Suspect]
     Route: 041
     Dates: start: 20090226, end: 20090226
  12. TOCILIZUMAB [Suspect]
     Route: 041
     Dates: start: 20090312, end: 20090312
  13. TOCILIZUMAB [Suspect]
     Route: 041
     Dates: start: 20090326, end: 20090326
  14. TOCILIZUMAB [Suspect]
     Route: 041
     Dates: start: 20090422, end: 20090422
  15. TOCILIZUMAB [Suspect]
     Route: 041
     Dates: start: 20090511, end: 20090511
  16. TOCILIZUMAB [Suspect]
     Route: 041
     Dates: start: 20090525
  17. PREDONINE [Concomitant]
     Route: 048
     Dates: start: 20080606, end: 20080624
  18. PREDONINE [Concomitant]
     Route: 048
     Dates: start: 20080625, end: 20080710
  19. PREDONINE [Concomitant]
     Route: 048
     Dates: start: 20080711, end: 20080729
  20. PREDONINE [Concomitant]
     Route: 048
     Dates: start: 20080730, end: 20080805
  21. PREDONINE [Concomitant]
     Route: 048
     Dates: start: 20080806, end: 20080811
  22. PREDONINE [Concomitant]
     Route: 048
     Dates: start: 20080812, end: 20080818
  23. PREDONINE [Concomitant]
     Route: 048
     Dates: start: 20080819, end: 20081006
  24. PREDONINE [Concomitant]
     Route: 048
     Dates: start: 20081007, end: 20081013
  25. PREDONINE [Concomitant]
     Route: 048
     Dates: start: 20081014, end: 20081027
  26. PREDONINE [Concomitant]
     Route: 048
     Dates: start: 20081028, end: 20081030
  27. PREDONINE [Concomitant]
     Route: 048
     Dates: start: 20081031, end: 20081106
  28. PREDONINE [Concomitant]
     Route: 048
     Dates: start: 20081107, end: 20081130
  29. PREDONINE [Concomitant]
     Route: 048
     Dates: start: 20081201, end: 20090108
  30. PREDONINE [Concomitant]
     Route: 048
     Dates: start: 20090109, end: 20090115
  31. PREDONINE [Concomitant]
     Route: 048
     Dates: start: 20090116, end: 20090122
  32. PREDONINE [Concomitant]
     Route: 048
     Dates: start: 20090123, end: 20090129
  33. PREDONINE [Concomitant]
     Route: 048
     Dates: start: 20090130, end: 20090205
  34. FUNGIZONE [Concomitant]
     Dosage: ROUTE: RESPIRATORY (INHALATION)
     Route: 055
     Dates: start: 20080607
  35. LENDORMIN [Concomitant]
     Route: 048
     Dates: start: 20080610
  36. GASTROM [Concomitant]
     Dosage: DRUG: GASTROM (ECABET SODIUM)
     Route: 048
     Dates: start: 20080625
  37. ISCOTIN [Concomitant]
     Dosage: FORM: ORAL FORMULATION (NOT OTHERWISE SPECIFIED)
     Route: 048
     Dates: start: 20080711
  38. PYDOXAL [Concomitant]
     Route: 048
     Dates: start: 20080711
  39. FOLIAMIN [Concomitant]
     Dosage: FORM: ORAL FORMULATION (NOT OTHERWISE SPECIFIED)
     Route: 048
     Dates: start: 20080712
  40. BENET [Concomitant]
     Dosage: DRUG: BENET (SODIUM RISEDRONATE HYDRATE)
     Route: 048
     Dates: start: 20080714
  41. BASEN [Concomitant]
     Route: 048
     Dates: start: 20080717
  42. BENAMBAX [Concomitant]
     Dosage: DRUG: BENAMBAX (PENTAMIDINE ISETIONATE), ROUTE: RESPIRATORY (INHALATION)
     Route: 055
     Dates: start: 20080722, end: 20090227
  43. METHYCOBAL [Concomitant]
     Dosage: FORM: ORAL FORMULATION (NOT OTHERWISE SPECIFIED)
     Route: 048
     Dates: start: 20080724
  44. NEORAL [Concomitant]
     Route: 048
     Dates: start: 20080807
  45. NEORAL [Concomitant]
     Route: 048
     Dates: start: 20081010
  46. AMARYL [Concomitant]
     Route: 048
     Dates: start: 20080825

REACTIONS (4)
  - HYPERLIPIDAEMIA [None]
  - INTERSTITIAL LUNG DISEASE [None]
  - LIVER DISORDER [None]
  - STILL'S DISEASE ADULT ONSET [None]
